FAERS Safety Report 6228709-8 (Version None)
Quarter: 2009Q2

REPORT INFORMATION
  Report Type: 
  Country: None (occurrence: None)
  Receive Date: 20090615
  Receipt Date: 20090608
  Transmission Date: 20091009
  Serious: Yes (Hospitalization)
  Sender: FDA-Public Use
  Company Number: FR-JNJFOC-20090602675

PATIENT
  Sex: Male

DRUGS (6)
  1. DURAGESIC-100 [Suspect]
     Indication: PAIN
     Route: 062
  2. ORAMORPH SR [Suspect]
     Indication: PAIN
     Route: 048
  3. DOLIPRANE [Concomitant]
  4. GEMCITABINE [Concomitant]
  5. CISPLATIN [Concomitant]
  6. VOLTAREN [Concomitant]
     Route: 048

REACTIONS (2)
  - INTESTINAL OBSTRUCTION [None]
  - VOMITING [None]
